FAERS Safety Report 16548254 (Version 2)
Quarter: 2019Q4

REPORT INFORMATION
  Report Type: Spontaneous
  Country: US (occurrence: US)
  Receive Date: 20190709
  Receipt Date: 20191003
  Transmission Date: 20200122
  Serious: No
  Sender: FDA-Public Use
  Company Number: US-TEVA-2019-US-1071538

PATIENT
  Age: 34 Year
  Sex: Male

DRUGS (3)
  1. BUPRENORPHINE. [Suspect]
     Active Substance: BUPRENORPHINE
     Dosage: DOSE STRENGTH: 8 (UNITS UNSPECIFIED)
     Route: 060
  2. GABAPENTIN. [Concomitant]
     Active Substance: GABAPENTIN
     Route: 065
  3. DEXTROAMPHETAMINE SACCHARATE, AMPHETAMINE ASPARTATE ZYDUS [Concomitant]

REACTIONS (1)
  - Drug screen positive [Unknown]
